FAERS Safety Report 7332908-1 (Version None)
Quarter: 2011Q1

REPORT INFORMATION
  Report Type: 
  Country: None (occurrence: None)
  Receive Date: 20110304
  Receipt Date: 20110301
  Transmission Date: 20110831
  Serious: Yes (Life-Threatening, Hospitalization, Other)
  Sender: FDA-Public Use
  Company Number: PHHY2010US60418

PATIENT
  Sex: Male
  Weight: 101.13 kg

DRUGS (12)
  1. SERTRALINE HYDROCHLORIDE [Concomitant]
     Dosage: 1 DF, DAILY
     Route: 048
  2. STOOL SOFTENER [Concomitant]
     Dosage: 1 CAPSULE DAILY PRN
     Route: 048
  3. EXJADE [Suspect]
     Indication: MYELODYSPLASTIC SYNDROME
     Dosage: 2000 MG DAILY
     Route: 048
     Dates: start: 20100819
  4. AMBIEN [Concomitant]
     Dosage: 1 DF, AT BEDTIME PRN
     Route: 048
  5. EXJADE [Suspect]
     Indication: IRON OVERLOAD
     Dosage: 1500 MG DAILY
     Route: 048
  6. OXYCODONE HCL AND ACETAMINOPHEN [Concomitant]
     Dosage: 1 DF, EBRY 4 HOURS PRN
     Route: 048
  7. ATENOLOL [Concomitant]
     Dosage: 1 DF, DAILY
     Route: 048
  8. SENNA [Concomitant]
     Route: 048
  9. FLOMAX [Concomitant]
     Route: 048
  10. EXJADE [Suspect]
     Dosage: 1000 MG DAILY
     Route: 048
  11. LYRICA [Concomitant]
     Route: 048
  12. MEGACE [Concomitant]
     Dosage: 40 MG/ML, FOUR TIMES A DAY
     Route: 048

REACTIONS (5)
  - DIARRHOEA [None]
  - CELLULITIS [None]
  - ABSCESS NECK [None]
  - FAECAL INCONTINENCE [None]
  - FEELING ABNORMAL [None]
